FAERS Safety Report 6918599-X (Version None)
Quarter: 2010Q3

REPORT INFORMATION
  Report Type: 
  Country: None (occurrence: None)
  Receive Date: 20100811
  Receipt Date: 20100803
  Transmission Date: 20110219
  Serious: Yes (Hospitalization)
  Sender: FDA-Public Use
  Company Number: GB-MPIJNJ-2010-04206

PATIENT

DRUGS (3)
  1. VELCADE [Suspect]
     Indication: MULTIPLE MYELOMA
     Dosage: 2.5 MG, UNK
     Route: 042
     Dates: start: 20100614, end: 20100729
  2. DEXAMETHASONE [Suspect]
     Indication: MULTIPLE MYELOMA
  3. DOXORUBICIN HCL [Suspect]
     Indication: MULTIPLE MYELOMA
     Dosage: 68 MG, UNK
     Route: 042
     Dates: start: 20100614, end: 20100726

REACTIONS (3)
  - MALAISE [None]
  - NEURALGIA [None]
  - STEROID WITHDRAWAL SYNDROME [None]
